FAERS Safety Report 24104478 (Version 1)
Quarter: 2024Q3

REPORT INFORMATION
  Report Type: Spontaneous
  Country: US (occurrence: None)
  Receive Date: 20240716
  Receipt Date: 20240716
  Transmission Date: 20241016
  Serious: Yes (Hospitalization)
  Sender: Public
  Company Number: None

PATIENT
  Sex: Female

DRUGS (1)
  1. GAMMAGARD [Suspect]
     Active Substance: HUMAN IMMUNOGLOBULIN G
     Dosage: FREQUENCY : TWICE A WEEK;?
     Route: 058

REACTIONS (3)
  - Dyspnoea [None]
  - Urticaria [None]
  - Oxygen saturation decreased [None]

NARRATIVE: CASE EVENT DATE: 20240711
